FAERS Safety Report 7237582-0 (Version None)
Quarter: 2011Q1

REPORT INFORMATION
  Report Type: 
  Country: None (occurrence: None)
  Receive Date: 20110118
  Receipt Date: 20110105
  Transmission Date: 20110831
  Serious: Yes (Other)
  Sender: FDA-Public Use
  Company Number: RB-18582-2011

PATIENT
  Age: 76 Year
  Sex: Male

DRUGS (4)
  1. PREVACID [Concomitant]
  2. LISINOPRIL [Concomitant]
  3. MUCINEX [Suspect]
     Indication: RESPIRATORY TRACT CONGESTION
     Dosage: (1200 MG 1X/12 HOURS, PATIENT LAST TOOK PRODUCT ON 04-JAN-2011 ORAL)
     Route: 048
  4. ASPIRIN [Concomitant]

REACTIONS (3)
  - DIZZINESS [None]
  - INCORRECT DOSE ADMINISTERED [None]
  - BLOOD PRESSURE INCREASED [None]
